FAERS Safety Report 5271886-6 (Version None)
Quarter: 2007Q1

REPORT INFORMATION
  Report Type: 
  Country: None (occurrence: None)
  Receive Date: 20070316
  Receipt Date: 20070305
  Transmission Date: 20070707
  Serious: Yes (Death)
  Sender: FDA-Public Use
  Company Number: GXKR2007GB02270

PATIENT
  Age: 70 Year
  Sex: Male
  Weight: 60 kg

DRUGS (8)
  1. ASPIRIN [Suspect]
     Dosage: 300 MG, ORAL
     Route: 048
     Dates: start: 20061003, end: 20061003
  2. CLOPIDOGREL [Suspect]
     Dosage: 300 MG, ORAL
     Route: 048
     Dates: start: 20061003, end: 20061003
  3. ENOXAPARIN (ENOXAPARIN, HEPARIN-FRACTION) [Suspect]
     Dosage: 30 MG, INTRAVENOUS
     Route: 042
     Dates: start: 20061003, end: 20061003
  4. ENOXAPARIN (ENOXAPARIN, HEPARIN-FRACTION) [Suspect]
     Dosage: 60 MG, SUBCUTANEOUS
     Route: 058
     Dates: start: 20061003, end: 20061003
  5. TENECTEPLASE (TENECTEPLASE) [Suspect]
     Dosage: 6000 IU, INTRAVENOUS
     Route: 042
     Dates: start: 20061003, end: 20061003
  6. ATENOLOL [Concomitant]
  7. GTN (GLYCERYL TRINITRATE) [Concomitant]
  8. MORPHINE [Concomitant]

REACTIONS (3)
  - CEREBRAL HAEMORRHAGE [None]
  - DRUG INTERACTION [None]
  - THROMBOLYSIS [None]
